FAERS Safety Report 9303139 (Version 1)
Quarter: 2013Q2

REPORT INFORMATION
  Report Type: Spontaneous
  Country: US (occurrence: US)
  Receive Date: 20130522
  Receipt Date: 20130522
  Transmission Date: 20140414
  Serious: Yes (Other)
  Sender: FDA-Public Use
  Company Number: US-SANOFI-AVENTIS-2013SA051584

PATIENT
  Age: 52 Year
  Sex: Female

DRUGS (1)
  1. AUBAGIO [Suspect]
     Indication: MULTIPLE SCLEROSIS
     Dosage: THERAPY END DATE - A MONTH AGO
     Route: 048
     Dates: start: 20130125, end: 201304

REACTIONS (1)
  - Hallucination, visual [Recovered/Resolved]
